FAERS Safety Report 5110384-7 (Version None)
Quarter: 2006Q3

REPORT INFORMATION
  Report Type: 
  Country: None (occurrence: None)
  Receive Date: 20060921
  Receipt Date: 20060914
  Transmission Date: 20061208
  Serious: Yes (Life-Threatening, Hospitalization)
  Sender: FDA-Public Use
  Company Number: MA-SANOFI-SYNTHELABO-A01200607605

PATIENT
  Age: 45 Year
  Sex: Female
  Weight: 61 kg

DRUGS (3)
  1. FLUOROURACIL [Concomitant]
     Dosage: UNK
     Route: 065
  2. ELVORINE [Concomitant]
     Dosage: UNK
     Route: 065
  3. ELOXATIN [Suspect]
     Route: 042

REACTIONS (1)
  - RENAL FAILURE ACUTE [None]
